FAERS Safety Report 5307255-X (Version None)
Quarter: 2007Q2

REPORT INFORMATION
  Report Type: 
  Country: None (occurrence: None)
  Receive Date: 20070425
  Receipt Date: 20070417
  Transmission Date: 20071010
  Serious: Yes (Hospitalization)
  Sender: FDA-Public Use
  Company Number: FR-GLAXOSMITHKLINE-B0466604A

PATIENT
  Age: 91 Year
  Sex: Male
  Weight: 68 kg

DRUGS (6)
  1. DEROXAT [Suspect]
     Indication: DEPRESSION
     Dosage: 20MG IN THE MORNING
     Route: 048
     Dates: end: 20070225
  2. KARDEGIC [Suspect]
     Dosage: 160MG IN THE MORNING
     Route: 048
     Dates: start: 20061211, end: 20070225
  3. CORDARONE [Concomitant]
     Dosage: 1UNIT IN THE MORNING
     Dates: start: 20061211
  4. MODOPAR [Concomitant]
     Dosage: 250MG THREE TIMES PER DAY
     Dates: start: 20060101
  5. TRIVASTAL [Concomitant]
     Dosage: 50MG IN THE MORNING
     Dates: start: 20060101
  6. STILNOX [Concomitant]
     Dosage: 5MG AT NIGHT

REACTIONS (6)
  - BLOOD CREATININE INCREASED [None]
  - BLOOD UREA INCREASED [None]
  - C-REACTIVE PROTEIN INCREASED [None]
  - DRUG INTERACTION [None]
  - EPISTAXIS [None]
  - WHITE BLOOD CELL COUNT INCREASED [None]
